FAERS Safety Report 20024532 (Version 1)
Quarter: 2021Q4

REPORT INFORMATION
  Report Type: Spontaneous
  Country: DE (occurrence: DE)
  Receive Date: 20211102
  Receipt Date: 20211102
  Transmission Date: 20220303
  Serious: Yes (Hospitalization)
  Sender: FDA-Public Use
  Company Number: DE-DROSSAPHA-1316

PATIENT
  Age: 20 Year
  Sex: Male

DRUGS (3)
  1. METRONIDAZOLE [Suspect]
     Active Substance: METRONIDAZOLE
     Indication: Blastocystis infection
     Dosage: UNK (THIRD CYCLE OF METRONIDAZOLE THERAPY)
     Route: 065
  2. METRONIDAZOLE [Suspect]
     Active Substance: METRONIDAZOLE
     Dosage: UNK (SECOND CYCLE OF METRONIDAZOLE THERAPY)
     Route: 065
  3. METRONIDAZOLE [Suspect]
     Active Substance: METRONIDAZOLE
     Dosage: UNK (FIRST CYCLE OF METRONIDAZOLE THERAPY)
     Route: 065

REACTIONS (1)
  - Drug ineffective [Unknown]
